FAERS Safety Report 5587219-1 (Version None)
Quarter: 2008Q1

REPORT INFORMATION
  Report Type: 
  Country: None (occurrence: None)
  Receive Date: 20080110
  Receipt Date: 20070730
  Transmission Date: 20080703
  Serious: No
  Sender: FDA-Public Use
  Company Number: US-BRISTOL-MYERS SQUIBB COMPANY-13861463

PATIENT
  Sex: Female

DRUGS (1)
  1. CARDIOLITE [Suspect]

REACTIONS (3)
  - ECCHYMOSIS [None]
  - INJECTION SITE EXTRAVASATION [None]
  - PAIN [None]
